FAERS Safety Report 10234215 (Version 1)
Quarter: 2014Q2

REPORT INFORMATION
  Report Type: Spontaneous
  Country: GB (occurrence: GB)
  Receive Date: 20140612
  Receipt Date: 20140612
  Transmission Date: 20141212
  Serious: Yes (Hospitalization)
  Sender: FDA-Public Use
  Company Number: GB-MYLANLABS-2014S1012863

PATIENT
  Age: 68 Year
  Sex: Female
  Weight: 74 kg

DRUGS (10)
  1. CITALOPRAM [Suspect]
     Route: 048
     Dates: start: 20140512, end: 20140514
  2. ALENDRONIC ACID [Concomitant]
  3. AMLODIPINE [Concomitant]
  4. ATORVASTATIN [Concomitant]
  5. BECLOMETHASONE DIPROPIONATE [Concomitant]
  6. GLICLAZIDE [Concomitant]
  7. LETROZOLE [Concomitant]
  8. METFORMIN [Concomitant]
  9. PIOGLITAZONE [Concomitant]
  10. VENTOLIN [Concomitant]

REACTIONS (3)
  - Dizziness [Recovered/Resolved with Sequelae]
  - Somnolence [Recovered/Resolved with Sequelae]
  - Malaise [Recovered/Resolved with Sequelae]
